FAERS Safety Report 6039058-5 (Version None)
Quarter: 2009Q1

REPORT INFORMATION
  Report Type: 
  Country: None (occurrence: None)
  Receive Date: 20090115
  Receipt Date: 20090107
  Transmission Date: 20090719
  Serious: Yes (Other)
  Sender: FDA-Public Use
  Company Number: US-ELI_LILLY_AND_COMPANY-US200901000792

PATIENT
  Sex: Female

DRUGS (9)
  1. HUMALOG [Suspect]
  2. NOVOLOG [Concomitant]
  3. LANTUS [Concomitant]
     Indication: TYPE 2 DIABETES MELLITUS
  4. SYNTHROID [Concomitant]
  5. LISINOPRIL [Concomitant]
  6. FLEXERIL [Concomitant]
     Indication: SCIATICA
  7. MOBIC [Concomitant]
     Indication: OSTEOARTHRITIS
  8. CLONAZEPAM [Concomitant]
     Indication: RESTLESS LEGS SYNDROME
  9. PROTONIX [Concomitant]
     Indication: GASTROOESOPHAGEAL REFLUX DISEASE

REACTIONS (15)
  - COUGH [None]
  - DRY SKIN [None]
  - FALL [None]
  - FEELING HOT [None]
  - GASTROOESOPHAGEAL REFLUX DISEASE [None]
  - HIP FRACTURE [None]
  - HYPERSENSITIVITY [None]
  - KNEE ARTHROPLASTY [None]
  - LARYNGITIS [None]
  - OSTEOARTHRITIS [None]
  - PAIN [None]
  - PRURITUS [None]
  - RESTLESS LEGS SYNDROME [None]
  - SCIATICA [None]
  - UPPER RESPIRATORY TRACT INFECTION [None]
